FAERS Safety Report 10366131 (Version 1)
Quarter: 2014Q1

REPORT INFORMATION
  Report Type: Spontaneous
  Country: US (occurrence: None)
  Receive Date: 20140306
  Receipt Date: 20140306
  Transmission Date: 20141002
  Serious: Yes (Hospitalization)
  Sender: FDA-Public Use
  Company Number: 163-21880-13030964

PATIENT
  Age: 55 Year
  Sex: Male
  Weight: 103.87 kg

DRUGS (11)
  1. REVLIMID (LENALIDOMIDE) (25 MILLIGRAM, CAPSULES) [Suspect]
     Indication: PLASMA CELL MYELOMA
     Dosage: 25 MG, 14 IN 14 D, PO
     Route: 048
     Dates: start: 20130218, end: 20130225
  2. ACYCLOVIR (ACICLOVIR) (CAPSULES) [Concomitant]
  3. BENICAR (OLMESARTAN MEDOXOMIL) (TABLETS) [Concomitant]
  4. DEXAMETHASONE (UNKNOWN) [Concomitant]
  5. GABAPENTIN (UNKNOWN) [Concomitant]
  6. ASPIRIN (ACETYLSALICYIC ACID) (UNKNOWN) [Concomitant]
  7. TRAMADOL HCL (TRAMADOL HYDROCHLORIDE) (UNKNOWN) [Concomitant]
  8. TRAZODONE HCL (TRAZODONE HYDROCHLORIDE) (UNKNOWN) [Concomitant]
  9. VELCADE (BORTEZOMIB) (UNKNOWN) [Concomitant]
  10. VENLAFAXINE HCL (VENLAFAXINE HYDROCHLORIDE) (UNKNOWN) [Concomitant]
  11. PHENERGAN (PROMETHAZINE HYDROCHLORIDE) (UNKNOWN) [Concomitant]

REACTIONS (2)
  - Febrile neutropenia [None]
  - Headache [None]
